FAERS Safety Report 9266597 (Version 1)
Quarter: 2013Q2

REPORT INFORMATION
  Report Type: Spontaneous
  Country: CN (occurrence: CN)
  Receive Date: 20130502
  Receipt Date: 20130502
  Transmission Date: 20140414
  Serious: Yes (Other)
  Sender: FDA-Public Use
  Company Number: CN-BAYER-2013-052211

PATIENT
  Sex: Female

DRUGS (1)
  1. YASMIN [Suspect]
     Dosage: 1 DF, QD
     Route: 048
     Dates: start: 2012

REACTIONS (4)
  - Cholecystectomy [None]
  - Drug dose omission [Recovered/Resolved]
  - Withdrawal bleed [Not Recovered/Not Resolved]
  - Menorrhagia [None]
